FAERS Safety Report 24159861 (Version 1)
Quarter: 2024Q3

REPORT INFORMATION
  Report Type: Report from Study
  Country: US (occurrence: US)
  Receive Date: 20240731
  Receipt Date: 20240731
  Transmission Date: 20241017
  Serious: Yes (Hospitalization)
  Sender: ABBVIE
  Company Number: US-ABBVIE-5855447

PATIENT
  Sex: Male

DRUGS (1)
  1. VENCLEXTA [Suspect]
     Active Substance: VENETOCLAX
     Indication: Mantle cell lymphoma
     Route: 048

REACTIONS (5)
  - Laboratory test abnormal [Unknown]
  - Pain in extremity [Unknown]
  - Ascites [Unknown]
  - Abdominal pain upper [Unknown]
  - Oedema peripheral [Unknown]
